FAERS Safety Report 5336868-4 (Version None)
Quarter: 2007Q2

REPORT INFORMATION
  Report Type: 
  Country: None (occurrence: None)
  Receive Date: 20070524
  Receipt Date: 20070524
  Transmission Date: 20071010
  Serious: Yes (Other)
  Sender: FDA-Public Use
  Company Number: None

PATIENT
  Age: 28 Year
  Sex: Male

DRUGS (1)
  1. STING-EZE [Suspect]
     Indication: DRY EYE
     Dosage: TOPICAL;1.0 DROP
     Route: 045
     Dates: start: 20070515, end: 20070515

REACTIONS (3)
  - ACCIDENTAL EXPOSURE [None]
  - CORNEAL ABRASION [None]
  - EYE BURNS [None]
